FAERS Safety Report 8615313-7 (Version None)
Quarter: 2012Q3

REPORT INFORMATION
  Report Type: 
  Country: None (occurrence: None)
  Receive Date: 20120823
  Receipt Date: 20120814
  Transmission Date: 20120928
  Serious: Yes (Other)
  Sender: FDA-Public Use
  Company Number: NL-ELI_LILLY_AND_COMPANY-NL201207008518

PATIENT
  Age: 20 Year
  Sex: Female

DRUGS (1)
  1. OLANZAPINE [Suspect]
     Dosage: 10 MG, UNKNOWN

REACTIONS (2)
  - BLOOD PROLACTIN INCREASED [None]
  - PSYCHOTIC DISORDER [None]
